FAERS Safety Report 25504288 (Version 1)
Quarter: 2025Q3

REPORT INFORMATION
  Report Type: Spontaneous
  Country: US (occurrence: US)
  Receive Date: 20250702
  Receipt Date: 20250702
  Transmission Date: 20251020
  Serious: No
  Sender: DAIICHI
  Company Number: US-DAIICHI SANKYO, INC.-DS-2025-150345-USAA

PATIENT
  Sex: Male

DRUGS (2)
  1. VANFLYTA [Suspect]
     Active Substance: QUIZARTINIB DIHYDROCHLORIDE
     Indication: Acute myeloid leukaemia
     Route: 065
     Dates: start: 20250125
  2. VANFLYTA [Suspect]
     Active Substance: QUIZARTINIB DIHYDROCHLORIDE
     Route: 065
     Dates: start: 2025

REACTIONS (2)
  - Skin hypopigmentation [Recovered/Resolved]
  - Skin hypopigmentation [Not Recovered/Not Resolved]

NARRATIVE: CASE EVENT DATE: 20250101
